FAERS Safety Report 6375794-9 (Version None)
Quarter: 2009Q3

REPORT INFORMATION
  Report Type: 
  Country: None (occurrence: None)
  Receive Date: 20090924
  Receipt Date: 20090914
  Transmission Date: 20100115
  Serious: Yes (Other)
  Sender: FDA-Public Use
  Company Number: US-EISAI INC.-E3810-02783-SPO-US

PATIENT
  Sex: Female

DRUGS (1)
  1. ACIPHEX [Suspect]
     Dosage: UNKNOWN
     Dates: start: 20060101

REACTIONS (12)
  - ASTHMA [None]
  - CARPAL TUNNEL SYNDROME [None]
  - CHEST PAIN [None]
  - COUGH [None]
  - DIZZINESS [None]
  - DYSPHAGIA [None]
  - HYPERSENSITIVITY [None]
  - MYOCARDIAL INFARCTION [None]
  - NAUSEA [None]
  - RHINITIS [None]
  - SYNCOPE [None]
  - TENOSYNOVITIS [None]
